FAERS Safety Report 5590961-X (Version None)
Quarter: 2007Q4

REPORT INFORMATION
  Report Type: 
  Country: None (occurrence: None)
  Receive Date: 20071212
  Receipt Date: 20070803
  Transmission Date: 20080405
  Serious: Yes (Hospitalization, Other)
  Sender: FDA-Public Use
  Company Number: USA-2007-0028716

PATIENT
  Age: 16 Year
  Sex: Male

DRUGS (2)
  1. OXYCONTIN [Suspect]
     Indication: DRUG ABUSER
     Dosage: 120 MG, SEE TEXT
     Dates: start: 20070724
  2. ALPRAZOLAM [Suspect]
     Indication: DRUG ABUSER
     Dosage: 2 MG, SEE TEXT
     Dates: start: 20070724

REACTIONS (7)
  - COMA [None]
  - CYANOSIS [None]
  - LOSS OF CONSCIOUSNESS [None]
  - OVERDOSE [None]
  - SUBSTANCE ABUSE [None]
  - UNRESPONSIVE TO STIMULI [None]
  - VOMITING [None]
